FAERS Safety Report 7878613-4 (Version None)
Quarter: 2011Q4

REPORT INFORMATION
  Report Type: 
  Country: None (occurrence: None)
  Receive Date: 20111101
  Receipt Date: 20111101
  Transmission Date: 20120403
  Serious: Yes (Hospitalization)
  Sender: FDA-Public Use
  Company Number: None

PATIENT
  Age: 12 Year
  Sex: Female
  Weight: 36.287 kg

DRUGS (1)
  1. PREDNISONE [Suspect]
     Indication: ASTHMA
     Dosage: 20MG
     Route: 048
     Dates: start: 20111025, end: 20111029

REACTIONS (9)
  - MUSCLE SPASMS [None]
  - INADEQUATE ANALGESIA [None]
  - PAIN IN JAW [None]
  - LIP PAIN [None]
  - PAIN [None]
  - DYSKINESIA [None]
  - DYSTONIA [None]
  - DROOLING [None]
  - TEARFULNESS [None]
